FAERS Safety Report 20962312 (Version 1)
Quarter: 2022Q2

REPORT INFORMATION
  Report Type: Report from Study
  Country: None (occurrence: CA)
  Receive Date: 20220615
  Receipt Date: 20220615
  Transmission Date: 20220720
  Serious: No
  Sender: FDA-Public Use
  Company Number: CA-AKCEA THERAPEUTICS, INC.-2022IS003584

PATIENT
  Age: 61 Year
  Sex: Female

DRUGS (3)
  1. TEGSEDI [Suspect]
     Active Substance: INOTERSEN SODIUM
     Indication: Hereditary neuropathic amyloidosis
     Route: 058
     Dates: start: 20220316
  2. DEVICE [Suspect]
     Active Substance: DEVICE
  3. LYRICA [Concomitant]
     Active Substance: PREGABALIN
     Route: 065
     Dates: start: 2020

REACTIONS (2)
  - Pneumonia [Unknown]
  - Lung disorder [Unknown]
